FAERS Safety Report 15554728 (Version 1)
Quarter: 2018Q4

REPORT INFORMATION
  Report Type: Spontaneous
  Country: US (occurrence: US)
  Receive Date: 20181022
  Receipt Date: 20181022
  Transmission Date: 20190205
  Serious: No
  Sender: FDA-Public Use
  Company Number: None

PATIENT
  Age: 71 Year
  Sex: Female

DRUGS (2)
  1. VERZENIO [Suspect]
     Active Substance: ABEMACICLIB
     Indication: METASTASES TO BONE
  2. VERZENIO [Suspect]
     Active Substance: ABEMACICLIB
     Indication: BREAST CANCER FEMALE
     Dates: start: 201810, end: 201810

REACTIONS (7)
  - Decreased appetite [None]
  - Dry mouth [None]
  - Dry throat [None]
  - Dyspepsia [None]
  - Paranasal sinus discomfort [None]
  - Dry eye [None]
  - Diarrhoea [None]

NARRATIVE: CASE EVENT DATE: 20181018
